FAERS Safety Report 22050949 (Version 7)
Quarter: 2023Q2

REPORT INFORMATION
  Report Type: Report from Study
  Country: US (occurrence: US)
  Receive Date: 20230301
  Receipt Date: 20230525
  Transmission Date: 20230721
  Serious: Yes (Other)
  Sender: FDA-Public Use
  Company Number: US-JAZZ-2022-US-006571

PATIENT
  Age: 52 Year
  Sex: Female

DRUGS (16)
  1. XYREM [Suspect]
     Active Substance: SODIUM OXYBATE
     Indication: Narcolepsy
     Dosage: 2.25G BID FOR 2 WEEKS, 3GM BIF FOR 2 WEEKS, 3.75G BID
     Route: 048
     Dates: start: 201211, end: 201304
  2. XYREM [Suspect]
     Active Substance: SODIUM OXYBATE
     Indication: Cataplexy
     Dosage: DOSE ADJUSTMENT
     Dates: start: 201304, end: 202201
  3. XYREM [Suspect]
     Active Substance: SODIUM OXYBATE
     Indication: Somnolence
     Dosage: 4.5G BID AT BEDTIME, SECOND DOSE 2-4 HOURS AFTER FIRST DOSE.
     Route: 048
     Dates: start: 202202
  4. ALLOPURINOL [Suspect]
     Active Substance: ALLOPURINOL
     Indication: Product used for unknown indication
  5. TRAZODONE [Suspect]
     Active Substance: TRAZODONE HYDROCHLORIDE
     Indication: Product used for unknown indication
     Dosage: UNK
  6. MULTIVITAMIN IRON [Concomitant]
     Indication: Product used for unknown indication
     Dosage: 0000
     Dates: start: 20140101
  7. OTEZLA [Concomitant]
     Active Substance: APREMILAST
     Indication: Product used for unknown indication
     Dosage: UNK
     Dates: start: 20210305
  8. MELATONIN [Concomitant]
     Active Substance: MELATONIN
     Indication: Product used for unknown indication
     Dosage: UNK
     Dates: start: 20220302
  9. METOPROLOL SUCCINATE [Concomitant]
     Active Substance: METOPROLOL SUCCINATE
     Indication: Product used for unknown indication
     Dosage: UNK
     Dates: start: 20220413
  10. PAXLOVID [Concomitant]
     Active Substance: NIRMATRELVIR\RITONAVIR
     Indication: Product used for unknown indication
     Dosage: 300-100 MG PACK
     Dates: start: 20220721, end: 20220725
  11. AMITRIPTYLINE [Concomitant]
     Active Substance: AMITRIPTYLINE
     Indication: Product used for unknown indication
     Dosage: 10 MILLIGRAM
     Dates: start: 20230324
  12. CYTO Q T/F [Concomitant]
     Indication: Product used for unknown indication
     Dosage: UNK
     Dates: start: 20230308
  13. BIOTIN [Concomitant]
     Active Substance: BIOTIN
     Indication: Product used for unknown indication
     Dosage: 1000 MICROGRAM
     Dates: start: 20230325
  14. MINOXIDIL [Concomitant]
     Active Substance: MINOXIDIL
     Indication: Product used for unknown indication
     Dosage: 2.5 MILLIGRAM
     Dates: start: 20230325
  15. RESTASIS [Concomitant]
     Active Substance: CYCLOSPORINE
     Indication: Product used for unknown indication
     Dosage: 0.05 PERCENT, EYE EMULSION
     Dates: start: 20221001
  16. RESTASIS [Concomitant]
     Active Substance: CYCLOSPORINE
     Dosage: 0.05 PERCENT, EYE EMULSION
     Dates: start: 20221001

REACTIONS (16)
  - Cataract [Unknown]
  - Dry eye [Unknown]
  - Hunger [Unknown]
  - Psoriasis [Not Recovered/Not Resolved]
  - Nasal congestion [Unknown]
  - Palpitations [Unknown]
  - COVID-19 [Unknown]
  - Pre-existing condition improved [Unknown]
  - Weight increased [Unknown]
  - Nausea [Unknown]
  - Insomnia [Unknown]
  - Weight decreased [Unknown]
  - Somnolence [Unknown]
  - Alopecia [Unknown]
  - Off label use [Unknown]
  - Product administration interrupted [Unknown]

NARRATIVE: CASE EVENT DATE: 20200101
